FAERS Safety Report 9462720 (Version 1)
Quarter: 2013Q3

REPORT INFORMATION
  Report Type: Spontaneous
  Country: US (occurrence: US)
  Receive Date: 20130816
  Receipt Date: 20130816
  Transmission Date: 20140515
  Serious: No
  Sender: FDA-Public Use
  Company Number: US-PFIZER INC-2013237740

PATIENT
  Age: 42 Year
  Sex: Female
  Weight: 58.96 kg

DRUGS (6)
  1. CHANTIX [Suspect]
     Indication: SMOKING CESSATION THERAPY
     Dosage: UNK, 1X/DAY
     Route: 048
     Dates: start: 2003, end: 2003
  2. CHANTIX [Suspect]
     Dosage: UNK, 2X/DAY
     Route: 048
     Dates: start: 2003, end: 2003
  3. CHANTIX [Suspect]
     Dosage: 0.5 MG, 2X/DAY
     Route: 048
     Dates: start: 2003, end: 2003
  4. CHANTIX [Suspect]
     Dosage: UNK
     Route: 048
     Dates: start: 2003, end: 2003
  5. COZAAR [Concomitant]
     Indication: CARDIOMYOPATHY
     Dosage: 25 MG, 2X/DAY
  6. BISOPROLOL [Concomitant]
     Indication: CARDIOMYOPATHY
     Dosage: 5 MG, 1X/DAY

REACTIONS (5)
  - Blood caffeine decreased [Unknown]
  - Mood altered [Unknown]
  - Libido increased [Unknown]
  - Therapeutic response unexpected [Unknown]
  - Abnormal dreams [Recovered/Resolved]
